FAERS Safety Report 8796600 (Version 5)
Quarter: 2013Q3

REPORT INFORMATION
  Report Type: Spontaneous
  Country: US (occurrence: US)
  Receive Date: 20120919
  Receipt Date: 20130815
  Transmission Date: 20140515
  Serious: Yes (Hospitalization, Other)
  Sender: FDA-Public Use
  Company Number: US-009507513-1209USA003645

PATIENT
  Sex: Female
  Weight: 54.42 kg

DRUGS (6)
  1. FOSAMAX [Suspect]
     Indication: OSTEOPOROSIS
     Dosage: 10 MG, QD
     Route: 048
     Dates: start: 1995
  2. FOSAMAX [Suspect]
     Indication: OSTEOPENIA
     Dosage: 70 MG, QW
     Route: 048
     Dates: start: 2001, end: 200803
  3. ALENDRONATE SODIUM [Suspect]
     Indication: OSTEOPOROSIS
     Dosage: 70 MG, QW
     Route: 048
     Dates: start: 20080402, end: 201006
  4. ERGOCALCIFEROL [Concomitant]
     Dosage: 2000 IU, QD
     Dates: start: 1980
  5. PREDNISONE [Concomitant]
     Indication: HYPERSENSITIVITY
     Dosage: UNK
     Dates: start: 2010
  6. CALCIUM (UNSPECIFIED) [Concomitant]
     Indication: OSTEOPENIA

REACTIONS (22)
  - Intramedullary rod insertion [Unknown]
  - Femur fracture [Unknown]
  - Open reduction of fracture [Unknown]
  - Cholecystectomy [Unknown]
  - Femur fracture [Unknown]
  - Low turnover osteopathy [Unknown]
  - Essential hypertension [Unknown]
  - Hyperlipidaemia [Unknown]
  - Restless legs syndrome [Unknown]
  - Stress urinary incontinence [Unknown]
  - Foot fracture [Unknown]
  - Polypectomy [Unknown]
  - Eyelid operation [Unknown]
  - Cystitis [Unknown]
  - Tooth disorder [Unknown]
  - Epidural injection [Unknown]
  - Epistaxis [Unknown]
  - Fall [Unknown]
  - Facial bones fracture [Unknown]
  - Scoliosis [Unknown]
  - Osteosclerosis [Unknown]
  - Cough [Unknown]
